FAERS Safety Report 24089137 (Version 1)
Quarter: 2024Q3

REPORT INFORMATION
  Report Type: Spontaneous
  Country: IN (occurrence: IN)
  Receive Date: 20240715
  Receipt Date: 20240715
  Transmission Date: 20241016
  Serious: Yes (Other)
  Sender: STRIDES
  Company Number: IN-STRIDES ARCOLAB LIMITED-2024SP008423

PATIENT
  Age: 3 Decade
  Sex: Male

DRUGS (6)
  1. CYPROHEPTADINE [Suspect]
     Active Substance: CYPROHEPTADINE
     Indication: Product used for unknown indication
     Dosage: 4 MILLIGRAM, QD (PILL)
     Route: 065
  2. CYPROHEPTADINE [Suspect]
     Active Substance: CYPROHEPTADINE
     Dosage: 12 MILLIGRAM, QD (PILL)
     Route: 065
  3. CYPROHEPTADINE [Suspect]
     Active Substance: CYPROHEPTADINE
     Dosage: UNK (RESTARTED)
     Route: 065
  4. DEXAMETHASONE [Suspect]
     Active Substance: DEXAMETHASONE
     Indication: Product used for unknown indication
     Dosage: 1 MILLIGRAM, QD
     Route: 065
  5. DEXAMETHASONE [Suspect]
     Active Substance: DEXAMETHASONE
     Dosage: 4 MILLIGRAM, QD
     Route: 065
  6. DEXAMETHASONE [Suspect]
     Active Substance: DEXAMETHASONE
     Dosage: UNK (RESTARTED)
     Route: 065

REACTIONS (12)
  - Depressed mood [Recovered/Resolved]
  - Abdominal pain [Recovered/Resolved]
  - Gastrooesophageal reflux disease [Recovered/Resolved]
  - Decreased appetite [Recovered/Resolved]
  - Anxiety [Recovered/Resolved]
  - Drug withdrawal syndrome [Unknown]
  - Drug dependence [Unknown]
  - Irritability [Recovered/Resolved]
  - Tremor [Recovered/Resolved]
  - Insomnia [Recovered/Resolved]
  - Palpitations [Recovered/Resolved]
  - Drug abuse [Unknown]
